FAERS Safety Report 13255784 (Version 1)
Quarter: 2017Q1

REPORT INFORMATION
  Report Type: Spontaneous
  Country: US (occurrence: US)
  Receive Date: 20170217
  Receipt Date: 20170217
  Transmission Date: 20170428
  Serious: No
  Sender: FDA-Public Use
  Company Number: None

PATIENT
  Sex: Female

DRUGS (1)
  1. IBRANCE [Suspect]
     Active Substance: PALBOCICLIB
     Indication: BREAST CANCER FEMALE
     Dosage: DAILY FOR 21 DAYS, 7 DAYS OFF
     Route: 048
     Dates: start: 20160111

REACTIONS (3)
  - Diarrhoea [None]
  - Rash [None]
  - Pruritus [None]
